FAERS Safety Report 9882400 (Version 1)
Quarter: 2014Q1

REPORT INFORMATION
  Report Type: Report from Study
  Country: US (occurrence: US)
  Receive Date: 20140207
  Receipt Date: 20140207
  Transmission Date: 20141002
  Serious: Yes (Death)
  Sender: FDA-Public Use
  Company Number: US-GLAXOSMITHKLINE-B0967322A

PATIENT
  Age: 25 Year
  Sex: Male
  Weight: 135.5 kg

DRUGS (2)
  1. ZANAMIVIR [Suspect]
     Indication: H1N1 INFLUENZA
     Dosage: 600MG TWICE PER DAY
     Route: 042
     Dates: start: 20140109
  2. TAMIFLU [Concomitant]
     Route: 048

REACTIONS (1)
  - Disseminated intravascular coagulation [Fatal]
